FAERS Safety Report 9719258 (Version 2)
Quarter: 2013Q4

REPORT INFORMATION
  Report Type: Report from Study
  Country: BR (occurrence: BR)
  Receive Date: 20131127
  Receipt Date: 20131224
  Transmission Date: 20140711
  Serious: No
  Sender: FDA-Public Use
  Company Number: PHHY2013BR136534

PATIENT
  Age: 65 Year
  Sex: Female
  Weight: 56 kg

DRUGS (6)
  1. DIOVAN HCT [Suspect]
     Indication: HYPERTENSION
     Dosage: 1 UKN, A DAY
     Route: 048
  2. DIOVAN HCT [Suspect]
     Dosage: 1 UKN (320/12.5MG), QD (A DAY IN FASTING)
     Route: 048
  3. SIMVASTATIN [Concomitant]
     Indication: BLOOD CHOLESTEROL INCREASED
     Dosage: 1 DF (20MG), DAILY
     Route: 048
  4. METFORMIN [Concomitant]
     Indication: DIABETES MELLITUS
     Dosage: 2 DF (500MG), DAILY
     Route: 048
  5. METFORMIN [Concomitant]
     Dosage: 2 DF (850MG), DAILY
     Route: 048
     Dates: end: 201310
  6. BETES [Concomitant]
     Indication: DIABETES MELLITUS
     Dosage: 2 DF (2MG), DAILY
     Route: 048
     Dates: start: 201308

REACTIONS (1)
  - Abdominal pain upper [Unknown]
